FAERS Safety Report 9149392 (Version 1)
Quarter: 2013Q1

REPORT INFORMATION
  Report Type: Spontaneous
  Country: US (occurrence: US)
  Receive Date: 20130308
  Receipt Date: 20130308
  Transmission Date: 20140127
  Serious: Yes (Other)
  Sender: FDA-Public Use
  Company Number: US-ASTELLAS-2013US001685

PATIENT
  Age: 77 Year
  Sex: Male

DRUGS (25)
  1. XTANDI [Suspect]
     Indication: PROSTATE CANCER
     Dosage: 160 MG, UID/QD
     Route: 048
     Dates: start: 20130129, end: 20130130
  2. ARICEPT [Concomitant]
     Indication: PRODUCT USED FOR UNKNOWN INDICATION
     Dosage: 1 DF, TAKE ONE EVERY EVENING
     Route: 048
  3. ASPIRIN [Concomitant]
     Indication: PRODUCT USED FOR UNKNOWN INDICATION
     Dosage: 81 MG, UID/QD
     Route: 048
  4. ALLOPURINOL [Concomitant]
     Indication: PRODUCT USED FOR UNKNOWN INDICATION
     Dosage: 200 MG, UID/QD
     Route: 048
  5. VITAMIN B12 [Concomitant]
     Indication: PRODUCT USED FOR UNKNOWN INDICATION
     Dosage: 2500 UG, UID/QD
     Route: 060
  6. METFORMIN HCL [Concomitant]
     Indication: PRODUCT USED FOR UNKNOWN INDICATION
     Dosage: 1000 MG, UID/QD
     Route: 048
  7. LASIX                              /00032601/ [Concomitant]
     Indication: PRODUCT USED FOR UNKNOWN INDICATION
     Dosage: 20 MG, UID/QD
     Route: 048
  8. NEURONTIN [Concomitant]
     Indication: PRODUCT USED FOR UNKNOWN INDICATION
     Dosage: 300 MG, TID
     Route: 048
  9. PRAVASTATIN SODIUM [Concomitant]
     Indication: PRODUCT USED FOR UNKNOWN INDICATION
     Dosage: 80 MG, UID/QD
     Route: 048
  10. PRILOSEC                           /00661201/ [Concomitant]
     Indication: PRODUCT USED FOR UNKNOWN INDICATION
     Dosage: 20 MG, BID
     Route: 048
  11. TOPROL [Concomitant]
     Indication: PRODUCT USED FOR UNKNOWN INDICATION
     Dosage: 100 MG, TAKE ONCE A DAY IN AM
     Route: 048
  12. LUPRON DEPOT [Concomitant]
     Indication: CHEMOTHERAPY
     Dosage: UNK
     Route: 065
  13. XGEVA [Concomitant]
     Indication: CHEMOTHERAPY
     Dosage: UNK
     Route: 065
  14. PREDNISONE [Concomitant]
     Indication: PRODUCT USED FOR UNKNOWN INDICATION
     Dosage: 5 MG, TAKE ONE TABLET EVERY AM AND PM-NOT ON DATYS TAKING DEXAMETHASONE
     Route: 048
  15. GAS RELIEF [Concomitant]
     Indication: ERUCTATION
     Dosage: 125 MG, PRN AFTER MEALS
     Route: 048
  16. GAS RELIEF [Concomitant]
     Indication: FLATULENCE
  17. IMODIUM A-D [Concomitant]
     Indication: PRODUCT USED FOR UNKNOWN INDICATION
     Dosage: 2 MG, BID
     Route: 048
  18. ISOSORBID MONONITRAT [Concomitant]
     Indication: PRODUCT USED FOR UNKNOWN INDICATION
     Dosage: 30 MG, UID/QD
     Route: 048
  19. NITROCERIN [Concomitant]
     Indication: CHEST PAIN
     Dosage: 0.4 MG, PRN Q 5 MIN
     Route: 060
  20. MELATONIN [Concomitant]
     Indication: SLEEP DISORDER
     Dosage: START WITH 1MG AT HS (MAY INCREASE TO 5MG)
     Route: 048
  21. DOXYCYCLINE [Concomitant]
     Indication: PRODUCT USED FOR UNKNOWN INDICATION
     Dosage: 100 MG, (IN 15ML SOLUTION) 4-6 TIMES PER DAY
     Route: 048
  22. NYSTATIN [Concomitant]
     Indication: PRODUCT USED FOR UNKNOWN INDICATION
     Dosage: 6000000 U, (IN 15ML SOLUTION) 4-6 TIMES PER DAY
     Route: 048
  23. HYDROCORTISONE [Concomitant]
     Indication: PRODUCT USED FOR UNKNOWN INDICATION
     Dosage: 200 MG, (IN 15 ML SOLUTION) 4-6 TIMES PER DAY
     Route: 048
  24. BENADRYL                           /00000402/ [Concomitant]
     Indication: PRODUCT USED FOR UNKNOWN INDICATION
     Dosage: IN 15 ML SOLUTION; 4-6 TIMES PER DAY
     Route: 048
  25. CALCIUM +D3 [Concomitant]
     Indication: PRODUCT USED FOR UNKNOWN INDICATION
     Dosage: 2 DF, UID/QD
     Route: 048

REACTIONS (2)
  - Dysstasia [Recovered/Resolved]
  - Loss of consciousness [Recovered/Resolved]
